FAERS Safety Report 23899732 (Version 1)
Quarter: 2024Q2

REPORT INFORMATION
  Report Type: Spontaneous
  Country: AT (occurrence: AT)
  Receive Date: 20240526
  Receipt Date: 20240526
  Transmission Date: 20240716
  Serious: Yes (Other)
  Sender: FDA-Public Use
  Company Number: AT-JNJFOC-20240550002

PATIENT
  Age: 56 Year
  Sex: Male

DRUGS (2)
  1. ERLEADA [Suspect]
     Active Substance: APALUTAMIDE
     Indication: Hormone-dependent prostate cancer
     Route: 048
     Dates: start: 201202
  2. ENZALUTAMIDE [Suspect]
     Active Substance: ENZALUTAMIDE

REACTIONS (4)
  - Surgery [Unknown]
  - Urinary retention [Unknown]
  - Stress urinary incontinence [Unknown]
  - Hot flush [Unknown]

NARRATIVE: CASE EVENT DATE: 20211201
